APPROVED DRUG PRODUCT: SOAANZ
Active Ingredient: TORSEMIDE
Strength: 20MG
Dosage Form/Route: TABLET;ORAL
Application: N213218 | Product #001
Applicant: SARFEZ PHARMACEUTICALS INC
Approved: Jun 14, 2021 | RLD: Yes | RS: No | Type: DISCN

PATENTS:
Patent 10154963 | Expires: Oct 6, 2033